FAERS Safety Report 20735837 (Version 1)
Quarter: 2022Q2

REPORT INFORMATION
  Report Type: Spontaneous
  Country: GB (occurrence: GB)
  Receive Date: 20220421
  Receipt Date: 20220421
  Transmission Date: 20220721
  Serious: Yes (Other)
  Sender: FDA-Public Use
  Company Number: GB-TEVA-2022-GB-2028433

PATIENT
  Age: 66 Year
  Sex: Female

DRUGS (9)
  1. FLUDARABINE [Suspect]
     Active Substance: FLUDARABINE PHOSPHATE
     Indication: Urinary bladder sarcoma
     Dosage: TREATMENT COMPLETED
     Route: 065
  2. FLUDARABINE [Suspect]
     Active Substance: FLUDARABINE PHOSPHATE
     Indication: Salvage therapy
  3. FLUDARABINE [Suspect]
     Active Substance: FLUDARABINE PHOSPHATE
     Indication: Chloroma
  4. CYTARABINE\DAUNORUBICIN [Suspect]
     Active Substance: CYTARABINE\DAUNORUBICIN
     Indication: Urinary bladder sarcoma
     Dosage: ONE CYCLE OF A LIPOSOMAL FORMULATION OF DAUNORUBICIN AND CYTARABINE, TREATMENT COMPLETED
     Route: 065
  5. CYTARABINE\DAUNORUBICIN [Suspect]
     Active Substance: CYTARABINE\DAUNORUBICIN
     Indication: Chloroma
  6. CYTARABINE\DAUNORUBICIN [Suspect]
     Active Substance: CYTARABINE\DAUNORUBICIN
     Indication: Salvage therapy
  7. IDARUBICIN [Suspect]
     Active Substance: IDARUBICIN
     Indication: Urinary bladder sarcoma
     Dosage: TREATMENT COMPLETED
     Route: 065
  8. IDARUBICIN [Suspect]
     Active Substance: IDARUBICIN
     Indication: Salvage therapy
  9. IDARUBICIN [Suspect]
     Active Substance: IDARUBICIN
     Indication: Chloroma

REACTIONS (3)
  - Febrile neutropenia [Recovered/Resolved]
  - Klebsiella sepsis [Recovered/Resolved]
  - Klebsiella infection [Recovered/Resolved]
